FAERS Safety Report 9033388 (Version 2)
Quarter: 2013Q3

REPORT INFORMATION
  Report Type: Spontaneous
  Country: US (occurrence: ES)
  Receive Date: 20130128
  Receipt Date: 20130712
  Transmission Date: 20140515
  Serious: Yes (Other)
  Sender: FDA-Public Use
  Company Number: ES-009507513-0311ESP00028

PATIENT
  Age: 7 Year
  Sex: Male
  Weight: 32 kg

DRUGS (3)
  1. SINGULAIR [Suspect]
     Indication: ASTHMA
     Dosage: 4 MG, QD
     Route: 048
     Dates: start: 20030918, end: 200310
  2. CETIRIZINE HYDROCHLORIDE [Concomitant]
     Dosage: 10 MG, QD
     Route: 048
  3. FLUTICASONE PROPIONATE [Concomitant]
     Dosage: 1 DOSE, QD
     Route: 061

REACTIONS (5)
  - Nightmare [Not Recovered/Not Resolved]
  - Irritability [Not Recovered/Not Resolved]
  - Sleep terror [Not Recovered/Not Resolved]
  - Enuresis [Not Recovered/Not Resolved]
  - Fear [Not Recovered/Not Resolved]
